FAERS Safety Report 8045923-X (Version None)
Quarter: 2012Q1

REPORT INFORMATION
  Report Type: 
  Country: None (occurrence: None)
  Receive Date: 20120113
  Receipt Date: 20111226
  Transmission Date: 20120608
  Serious: Yes (Hospitalization)
  Sender: FDA-Public Use
  Company Number: JP-GLAXOSMITHKLINE-B0771961A

PATIENT
  Sex: Female

DRUGS (5)
  1. ZOLPIDEM [Concomitant]
     Indication: INSOMNIA
     Dosage: 5MG PER DAY
     Route: 048
  2. LITHIUM CARBONATE [Concomitant]
     Indication: AFFECT LABILITY
     Dosage: 200MG PER DAY
     Route: 048
  3. DEPAS [Concomitant]
     Indication: INSOMNIA
     Dosage: .5MG PER DAY
     Route: 048
  4. MEILAX [Concomitant]
     Indication: ANXIETY
     Dosage: .5MG PER DAY
     Route: 048
  5. LAMICTAL [Suspect]
     Indication: BIPOLAR DISORDER
     Dosage: 25MG PER DAY
     Route: 048
     Dates: start: 20111125, end: 20111206

REACTIONS (8)
  - PYREXIA [None]
  - BLOOD ALKALINE PHOSPHATASE INCREASED [None]
  - RASH GENERALISED [None]
  - HEPATIC FUNCTION ABNORMAL [None]
  - BLOOD LACTATE DEHYDROGENASE INCREASED [None]
  - ALANINE AMINOTRANSFERASE INCREASED [None]
  - GAMMA-GLUTAMYLTRANSFERASE INCREASED [None]
  - TOXIC SKIN ERUPTION [None]
